FAERS Safety Report 14288174 (Version 5)
Quarter: 2018Q2

REPORT INFORMATION
  Report Type: Spontaneous
  Country: DE (occurrence: DE)
  Receive Date: 20171214
  Receipt Date: 20180412
  Transmission Date: 20180711
  Serious: Yes (Death)
  Sender: FDA-Public Use
  Company Number: DE-TEVA-2017-DE-830312

PATIENT
  Age: 45 Year
  Sex: Female
  Weight: 55.8 kg

DRUGS (3)
  1. FLUDARABINE [Suspect]
     Active Substance: FLUDARABINE PHOSPHATE
     Dosage: 30 MG/M2 DAILY;
     Route: 042
  2. MELPHALAN. [Concomitant]
     Active Substance: MELPHALAN
     Dosage: 140 MG/M2 DAILY;
     Route: 042
     Dates: start: 20170401, end: 20170401
  3. GRAFALON [Suspect]
     Active Substance: LAPINE T-LYMPHOCYTE IMMUNE GLOBULIN
     Indication: STEM CELL TRANSPLANT
     Dosage: CUMMULATIVE DOSE OF 40 MG/KG
     Route: 042
     Dates: start: 20170407, end: 20170411

REACTIONS (2)
  - Epstein-Barr virus infection [Fatal]
  - Post transplant lymphoproliferative disorder [Fatal]

NARRATIVE: CASE EVENT DATE: 20170721
